FAERS Safety Report 13628088 (Version 1)
Quarter: 2017Q2

REPORT INFORMATION
  Report Type: Spontaneous
  Country: US (occurrence: US)
  Receive Date: 20170531
  Receipt Date: 20170531
  Transmission Date: 20170830
  Serious: Yes (Other)
  Sender: FDA-Public Use
  Company Number: US-ASTELLAS-1710114

PATIENT
  Sex: Male

DRUGS (5)
  1. ENSURE [Concomitant]
     Active Substance: AMINO ACIDS\DEXTROSE\ELECTROLYTES NOS\SOYBEAN OIL\VITAMINS
  2. TARCEVA [Suspect]
     Active Substance: ERLOTINIB HYDROCHLORIDE
     Indication: GASTROINTESTINAL NEOPLASM
     Route: 048
     Dates: start: 20150416
  3. ADDERALL [Concomitant]
     Active Substance: AMPHETAMINE ASPARTATE\AMPHETAMINE SULFATE\DEXTROAMPHETAMINE SACCHARATE\DEXTROAMPHETAMINE SULFATE
  4. AMYLASE [Concomitant]
     Active Substance: AMYLASE
  5. LIPASE [Concomitant]
     Active Substance: LIPASE

REACTIONS (7)
  - Weight decreased [Unknown]
  - Hypotonia [Unknown]
  - Dry mouth [Unknown]
  - Arthralgia [Unknown]
  - Malaise [Unknown]
  - Stevens-Johnson syndrome [Unknown]
  - Eating disorder [Unknown]
